FAERS Safety Report 7306685-4 (Version None)
Quarter: 2011Q1

REPORT INFORMATION
  Report Type: 
  Country: None (occurrence: None)
  Receive Date: 20110222
  Receipt Date: 20110209
  Transmission Date: 20110831
  Serious: Yes (Hospitalization)
  Sender: FDA-Public Use
  Company Number: FR-GENENTECH-313766

PATIENT
  Sex: Male

DRUGS (19)
  1. UROMITEXAN [Suspect]
     Dosage: UNK
     Route: 042
     Dates: start: 20101126
  2. UROMITEXAN [Suspect]
     Dosage: UNK
     Route: 042
     Dates: start: 20110104
  3. MABTHERA [Suspect]
     Indication: WEGENER'S GRANULOMATOSIS
     Dosage: UNK
     Route: 042
     Dates: start: 20101228
  4. METHYLPREDNISOLONE [Suspect]
     Dosage: UNK
     Route: 042
     Dates: start: 20110105
  5. UROMITEXAN [Suspect]
     Indication: WEGENER'S GRANULOMATOSIS
     Dosage: UNK
     Route: 042
     Dates: start: 20101112
  6. ENDOXAN [Suspect]
     Dosage: UNK
     Route: 042
     Dates: start: 20101214
  7. ENDOXAN [Suspect]
     Dosage: UNK
     Route: 042
     Dates: start: 20110104
  8. MABTHERA [Suspect]
     Dosage: UNK
     Route: 042
     Dates: start: 20110105
  9. PHENERGAN [Suspect]
     Indication: WEGENER'S GRANULOMATOSIS
     Dosage: 2 UNK, UNK
     Route: 042
     Dates: start: 20101228
  10. PHENERGAN [Suspect]
     Dosage: UNK
     Route: 042
     Dates: start: 20110105
  11. ZOPHREN [Suspect]
     Dosage: UNK
     Route: 042
     Dates: start: 20101126
  12. ZOPHREN [Suspect]
     Dosage: UNK
     Route: 042
     Dates: start: 20101214
  13. ENDOXAN [Suspect]
     Dosage: UNK
     Route: 042
     Dates: start: 20101126
  14. ENDOXAN [Suspect]
     Indication: WEGENER'S GRANULOMATOSIS
     Dosage: UNK
     Route: 042
     Dates: start: 20101112
  15. ZOPHREN [Suspect]
     Indication: WEGENER'S GRANULOMATOSIS
     Dosage: UNK
     Route: 042
     Dates: start: 20101112
  16. ZOPHREN [Suspect]
     Dosage: UNK
     Route: 042
     Dates: start: 20110104
  17. METHYLPREDNISOLONE [Suspect]
     Indication: WEGENER'S GRANULOMATOSIS
     Dosage: UNK
     Route: 042
     Dates: start: 20101228
  18. UROMITEXAN [Suspect]
     Dosage: UNK
     Route: 042
     Dates: start: 20101214
  19. PIPERACILLIN AND TAZOBACTAM [Suspect]
     Indication: WEGENER'S GRANULOMATOSIS
     Dosage: 4 UNK, QD
     Route: 042
     Dates: start: 20110106

REACTIONS (1)
  - AGRANULOCYTOSIS [None]
